FAERS Safety Report 19177036 (Version 1)
Quarter: 2021Q2

REPORT INFORMATION
  Report Type: Spontaneous
  Country: AU (occurrence: AU)
  Receive Date: 20210424
  Receipt Date: 20210424
  Transmission Date: 20210717
  Serious: Yes (Other)
  Sender: FDA-Public Use
  Company Number: NVSC2021AU085980

PATIENT
  Age: 42 Year
  Sex: Female

DRUGS (7)
  1. NELARABINE [Suspect]
     Active Substance: NELARABINE
     Indication: T-CELL TYPE ACUTE LEUKAEMIA
     Dosage: UNK, CYCLIC
     Route: 065
  2. VENETOCLAX. [Suspect]
     Active Substance: VENETOCLAX
     Dosage: 400 MG, QD (CYCLIC) (DOSE INCREASED OVER 3 DAYS)
     Route: 065
  3. TENOFOVIR [Concomitant]
     Active Substance: TENOFOVIR
     Indication: PROPHYLAXIS
  4. VENETOCLAX. [Suspect]
     Active Substance: VENETOCLAX
     Indication: T-CELL TYPE ACUTE LEUKAEMIA
     Dosage: 200 MG, QD (CYCLIC)
     Route: 065
     Dates: start: 201808
  5. TENOFOVIR [Concomitant]
     Active Substance: TENOFOVIR
     Indication: CHRONIC HEPATITIS B
     Dosage: UNK
     Route: 065
  6. TENOFOVIR [Concomitant]
     Active Substance: TENOFOVIR
     Indication: VIRAEMIA
  7. POSACONAZOLE [Concomitant]
     Active Substance: POSACONAZOLE
     Indication: PRODUCT USED FOR UNKNOWN INDICATION
     Dosage: UNK (FROM DAY PLUS 14)
     Route: 065

REACTIONS (2)
  - Therapy partial responder [Unknown]
  - Cytopenia [Unknown]
